FAERS Safety Report 5695141-5 (Version None)
Quarter: 2008Q2

REPORT INFORMATION
  Report Type: 
  Country: None (occurrence: None)
  Receive Date: 20080404
  Receipt Date: 20080325
  Transmission Date: 20081010
  Serious: Yes (Other)
  Sender: FDA-Public Use
  Company Number: US-PFIZER INC-2008019965

PATIENT
  Sex: Female
  Weight: 54.4 kg

DRUGS (4)
  1. CHANTIX [Suspect]
     Indication: TOBACCO ABUSE
     Route: 048
  2. ATENOLOL [Concomitant]
     Indication: HYPERTENSION
     Dosage: DAILY DOSE:25MG
     Route: 048
  3. LEVOTHROID [Concomitant]
     Dosage: TEXT:25 MCG
     Route: 048
  4. IBANDRONATE SODIUM [Concomitant]
     Dosage: DAILY DOSE:150MG
     Route: 048

REACTIONS (1)
  - BLOOD PRESSURE INCREASED [None]
